FAERS Safety Report 10413559 (Version 2)
Quarter: 2014Q4

REPORT INFORMATION
  Report Type: Spontaneous
  Country: IT (occurrence: IT)
  Receive Date: 20140827
  Receipt Date: 20141031
  Transmission Date: 20150528
  Serious: Yes (Hospitalization)
  Sender: FDA-Public Use
  Company Number: IT-TEVA-504027ISR

PATIENT
  Age: 4 Year
  Sex: Female

DRUGS (1)
  1. LESTRONETTE 0.10 MG/ 0.02 MG [Suspect]
     Active Substance: ETHINYL ESTRADIOL\LEVONORGESTREL
     Dosage: 3 DOSAGE FORMS DAILY;
     Route: 048
     Dates: start: 20140803, end: 20140803

REACTIONS (3)
  - Medication error [Recovered/Resolved]
  - Accidental exposure to product by child [Recovered/Resolved]
  - Vomiting [Recovered/Resolved]

NARRATIVE: CASE EVENT DATE: 20140803
